FAERS Safety Report 6977534-9 (Version None)
Quarter: 2010Q3

REPORT INFORMATION
  Report Type: 
  Country: None (occurrence: None)
  Receive Date: 20100910
  Receipt Date: 20100901
  Transmission Date: 20110219
  Serious: Yes (Other)
  Sender: FDA-Public Use
  Company Number: US-AMGEN-QUU432665

PATIENT
  Sex: Female
  Weight: 61.7 kg

DRUGS (4)
  1. NPLATE [Suspect]
     Indication: IDIOPATHIC THROMBOCYTOPENIC PURPURA
     Route: 058
     Dates: start: 20090121, end: 20100121
  2. CORTICOSTEROID NOS [Concomitant]
     Dates: start: 20081227
  3. PREDNISONE [Concomitant]
     Route: 048
     Dates: start: 20080327, end: 20090723
  4. RITUXAN [Concomitant]
     Dates: start: 20100115, end: 20100617

REACTIONS (3)
  - ANAEMIA [None]
  - COOMBS TEST POSITIVE [None]
  - POLYMYALGIA RHEUMATICA [None]
